FAERS Safety Report 4576927-7 (Version None)
Quarter: 2005Q1

REPORT INFORMATION
  Report Type: 
  Country: None (occurrence: None)
  Receive Date: 20050208
  Receipt Date: 20050126
  Transmission Date: 20050727
  Serious: Yes (Hospitalization)
  Sender: FDA-Public Use
  Company Number: HQWYE361520OCT03

PATIENT
  Age: 59 Year
  Sex: Female
  Weight: 65.83 kg

DRUGS (2)
  1. PREMPRO [Suspect]
     Indication: HORMONE REPLACEMENT THERAPY
     Dosage: 0.625MG/2.5MG TABLET DAILY, ORAL
     Route: 048
     Dates: start: 19970601, end: 20020701
  2. ZANTAC [Concomitant]

REACTIONS (15)
  - BLOOD CALCIUM INCREASED [None]
  - BLOOD CHOLESTEROL INCREASED [None]
  - CEREBRAL INFARCTION [None]
  - CEREBROVASCULAR ACCIDENT [None]
  - DIZZINESS [None]
  - ELECTROCARDIOGRAM ST SEGMENT ABNORMAL [None]
  - EXOSTOSIS [None]
  - HEMIPARESIS [None]
  - HIGH DENSITY LIPOPROTEIN INCREASED [None]
  - HYPERTENSION [None]
  - INTERVERTEBRAL DISC PROTRUSION [None]
  - LACUNAR INFARCTION [None]
  - MITRAL VALVE INCOMPETENCE [None]
  - POLYCYTHAEMIA VERA [None]
  - TRICUSPID VALVE INCOMPETENCE [None]
